FAERS Safety Report 7064493-6 (Version None)
Quarter: 2010Q4

REPORT INFORMATION
  Report Type: 
  Country: None (occurrence: None)
  Receive Date: 20101027
  Receipt Date: 20101018
  Transmission Date: 20110411
  Serious: Yes (Hospitalization)
  Sender: FDA-Public Use
  Company Number: CA-PFIZER INC-2010127483

PATIENT
  Age: 78 Year
  Sex: Male
  Weight: 75.7 kg

DRUGS (13)
  1. *PREDNISONE [Suspect]
     Indication: PROSTATE CANCER
     Dosage: 5 MG, 2X/DAY
     Route: 048
     Dates: start: 20100705, end: 20100901
  2. *PREDNISONE [Suspect]
     Dosage: 5 MG, 1X/DAY
     Route: 048
     Dates: start: 20100922, end: 20100926
  3. SUNITINIB MALATE [Suspect]
     Indication: PROSTATE CANCER
     Dosage: 37.5 MG, 1X/DAY
     Route: 048
     Dates: start: 20100705, end: 20100927
  4. COD-LIVER OIL [Concomitant]
     Indication: SUPPLEMENTATION THERAPY
     Dosage: UNK
     Dates: start: 19950101
  5. COSOPT [Concomitant]
     Indication: GLAUCOMA
     Dosage: UNK
     Dates: start: 20040101
  6. BIMATOPROST [Concomitant]
     Indication: GLAUCOMA
     Dosage: UNK
     Dates: start: 20040101
  7. DILAUDID [Concomitant]
     Indication: GROIN PAIN
     Dosage: UNK
     Dates: start: 20100720
  8. COLACE [Concomitant]
     Indication: CONSTIPATION
     Dosage: UNK
     Dates: start: 20100719
  9. SENOKOT [Concomitant]
     Indication: CONSTIPATION
     Dosage: UNK
     Dates: start: 20100719
  10. PANTOPRAZOLE [Concomitant]
     Indication: GASTROOESOPHAGEAL REFLUX DISEASE
     Dosage: UNK
     Dates: start: 20100818
  11. LEUPROLIDE ACETATE [Concomitant]
     Indication: PROSTATE CANCER
     Dosage: UNK
     Dates: start: 20050901
  12. LIDOCAINE HCL VISCOUS [Concomitant]
     Indication: STOMATITIS
     Dosage: UNK
     Dates: start: 20100922
  13. ZOLEDRONIC ACID [Concomitant]
     Indication: METASTASES TO BONE
     Dosage: UNK
     Dates: start: 20091029

REACTIONS (2)
  - FAILURE TO THRIVE [None]
  - HEPATIC FAILURE [None]
